FAERS Safety Report 25184023 (Version 1)
Quarter: 2025Q2

REPORT INFORMATION
  Report Type: Spontaneous
  Country: US (occurrence: US)
  Receive Date: 20250410
  Receipt Date: 20250410
  Transmission Date: 20250716
  Serious: No
  Sender: PFIZER
  Company Number: US-PFIZER INC-202500074059

PATIENT
  Age: 86 Year
  Sex: Female

DRUGS (2)
  1. VYNDAMAX [Suspect]
     Active Substance: TAFAMIDIS
     Dates: start: 20250328
  2. LASIX [Concomitant]
     Active Substance: FUROSEMIDE
     Dates: end: 20250403

REACTIONS (1)
  - Polyuria [Unknown]
